FAERS Safety Report 10973816 (Version 1)
Quarter: 2015Q1

REPORT INFORMATION
  Report Type: Spontaneous
  Country: US (occurrence: None)
  Receive Date: 20150331
  Receipt Date: 20150331
  Transmission Date: 20150721
  Serious: Yes (Life-Threatening, Hospitalization, Disabling)
  Sender: FDA-Public Use
  Company Number: None

PATIENT
  Age: 63 Year
  Sex: Female

DRUGS (3)
  1. MACROBID [Suspect]
     Active Substance: NITROFURANTOIN\NITROFURANTOIN MONOHYDRATE
     Indication: NEPHROLITHIASIS
     Dosage: 2 PILLS FOR AWHILE
     Route: 048
     Dates: start: 20071014, end: 20130604
  2. MACROBID [Suspect]
     Active Substance: NITROFURANTOIN\NITROFURANTOIN MONOHYDRATE
     Indication: KIDNEY INFECTION
     Dosage: 2 PILLS FOR AWHILE
     Route: 048
     Dates: start: 20071014, end: 20130604
  3. NITROFURANTOIN 100MG ALVOGEN [Suspect]
     Active Substance: NITROFURANTOIN

REACTIONS (4)
  - Decreased activity [None]
  - Weight decreased [None]
  - Interstitial lung disease [None]
  - Pneumonia [None]

NARRATIVE: CASE EVENT DATE: 20130214
